FAERS Safety Report 22619596 (Version 2)
Quarter: 2023Q2

REPORT INFORMATION
  Report Type: Spontaneous
  Country: JP (occurrence: JP)
  Receive Date: 20230620
  Receipt Date: 20230630
  Transmission Date: 20230722
  Serious: Yes (Hospitalization, Other)
  Sender: FDA-Public Use
  Company Number: JP-GLAXOSMITHKLINE-JP2023JPN083984

PATIENT

DRUGS (13)
  1. VALTREX [Suspect]
     Active Substance: VALACYCLOVIR HYDROCHLORIDE
     Indication: Herpes zoster
     Dosage: 1000 MG, TID
     Route: 048
     Dates: start: 20230528, end: 20230529
  2. LOXOPROFEN SODIUM [Suspect]
     Active Substance: LOXOPROFEN SODIUM
     Indication: Pain
     Dosage: 60 MG, BID
     Route: 048
     Dates: start: 20230528, end: 20230530
  3. CANDESARTAN CILEXETIL TABLET [Concomitant]
     Dosage: UNK
  4. FEBUXOSTAT [Concomitant]
     Active Substance: FEBUXOSTAT
     Dosage: UNK
  5. EZETIMIBE TABLET [Concomitant]
     Dosage: UNK
  6. BENIDIPINE HYDROCHLORIDE [Concomitant]
     Active Substance: BENIDIPINE HYDROCHLORIDE
     Dosage: UNK
  7. LAFUTIDINE TABLET [Concomitant]
     Dosage: UNK
  8. HERBALS [Concomitant]
     Active Substance: HERBALS
     Dosage: UNK
     Dates: start: 20230526, end: 20230529
  9. MAGNESIUM OXIDE [Concomitant]
     Active Substance: MAGNESIUM OXIDE
     Dosage: UNK
     Dates: start: 20230526, end: 20230529
  10. MOSAPRIDE CITRATE [Concomitant]
     Active Substance: MOSAPRIDE CITRATE
     Dosage: UNK
     Dates: start: 20230526, end: 20230529
  11. LINZESS TABLETS [Concomitant]
     Dosage: UNK
     Dates: start: 20230526, end: 20230529
  12. GASTER TABLETS [Concomitant]
     Dosage: UNK
     Dates: start: 20230528
  13. FAMVIR TABLET [Concomitant]
     Dosage: 250 MG, 3 TABLETS
     Dates: start: 20230529, end: 20230530

REACTIONS (4)
  - Renal disorder [Recovering/Resolving]
  - Renal impairment [Unknown]
  - Renal tubular disorder [Unknown]
  - Prescription drug used without a prescription [Unknown]

NARRATIVE: CASE EVENT DATE: 20230529
